FAERS Safety Report 15880989 (Version 1)
Quarter: 2019Q1

REPORT INFORMATION
  Report Type: Spontaneous
  Country: FR (occurrence: FR)
  Receive Date: 20190128
  Receipt Date: 20190128
  Transmission Date: 20190417
  Serious: Yes (Other)
  Sender: FDA-Public Use
  Company Number: FR-MYLANLABS-2019M1006941

PATIENT
  Age: 26 Year
  Sex: Male

DRUGS (4)
  1. CODEINE [Suspect]
     Active Substance: CODEINE
     Indication: PRODUCT USED FOR UNKNOWN INDICATION
     Dosage: UNK UNK, TOTAL
     Route: 048
     Dates: start: 20170325, end: 20170325
  2. TRAMADOL. [Suspect]
     Active Substance: TRAMADOL
     Indication: PRODUCT USED FOR UNKNOWN INDICATION
     Dosage: UNK UNK, TOTAL
     Route: 048
     Dates: start: 20170325, end: 20170325
  3. PARACETAMOL [Suspect]
     Active Substance: ACETAMINOPHEN
     Indication: PRODUCT USED FOR UNKNOWN INDICATION
     Dosage: 8 GRAM, TOTAL
     Route: 048
     Dates: start: 20170325, end: 20170325
  4. ZOPICLONE [Suspect]
     Active Substance: ZOPICLONE
     Indication: PRODUCT USED FOR UNKNOWN INDICATION
     Dosage: UNK, TOTAL
     Route: 048
     Dates: start: 20170325, end: 20170325

REACTIONS (4)
  - Suicide attempt [Unknown]
  - Analgesic drug level increased [Recovered/Resolved]
  - Toxicity to various agents [Recovered/Resolved]
  - Somnolence [Recovered/Resolved]

NARRATIVE: CASE EVENT DATE: 20170325
